FAERS Safety Report 23431677 (Version 2)
Quarter: 2024Q1

REPORT INFORMATION
  Report Type: Other
  Country: US (occurrence: None)
  Receive Date: 20240123
  Receipt Date: 20240125
  Transmission Date: 20240410
  Serious: No
  Sender: FDA-Public Use
  Company Number: US-ROCHE-3496309

PATIENT
  Age: 54 Year
  Sex: Male

DRUGS (10)
  1. OCREVUS [Suspect]
     Active Substance: OCRELIZUMAB
     Indication: Multiple sclerosis
     Route: 065
  2. LATANOPROST [Concomitant]
     Active Substance: LATANOPROST
     Dosage: PLACE 1 DROP INTO BOTH EYES NIGHTLY INSTALL 1 DROP BY OPTHALMIC ROUTE EVERY NIGHT INTO BOTH EYES
     Route: 047
  3. LORAZEPAM [Concomitant]
     Active Substance: LORAZEPAM
     Dosage: TAKE 1 TABLET (0.5MG 14 TABLETTOTAL BY MOUTH 2 TIMES DAILY
     Route: 048
  4. CHOLECALCIFEROL [Concomitant]
     Active Substance: CHOLECALCIFEROL
     Dosage: TAKE 1 CAPSULE 5000UNITS TOTAL BY MOUTH DAILY
  5. CYANOCOBALAMIN [Concomitant]
     Active Substance: CYANOCOBALAMIN
     Dosage: INJECT 2ML EVERY 30 DAYS
     Route: 042
  6. SILDENAFIL CITRATE [Concomitant]
     Active Substance: SILDENAFIL CITRATE
     Indication: Erectile dysfunction
     Dosage: DAILY AS NEEDED FOR ERECTILE DYSFUNCTION
     Route: 048
  7. FLUTICASONE PROPIONATE [Concomitant]
     Active Substance: FLUTICASONE PROPIONATE
     Dosage: 2 SPRAYS BY NASAL ROUTE DAILY
     Route: 045
  8. BACLOFEN [Concomitant]
     Active Substance: BACLOFEN
     Dosage: TAKE 1 TABLET BY MOUTH 3 TIMES DAILY
     Route: 048
  9. TEGRETOL [Concomitant]
     Active Substance: CARBAMAZEPINE
     Dosage: TAKE 1 TABLET DAILY 2 TIMES
     Route: 048
  10. SERTRALINE [Concomitant]
     Active Substance: SERTRALINE HYDROCHLORIDE

REACTIONS (1)
  - COVID-19 pneumonia [Unknown]
